FAERS Safety Report 7401204-6 (Version None)
Quarter: 2011Q2

REPORT INFORMATION
  Report Type: 
  Country: None (occurrence: None)
  Receive Date: 20110407
  Receipt Date: 20110329
  Transmission Date: 20111010
  Serious: Yes (Other)
  Sender: FDA-Public Use
  Company Number: CHPA2011US04968

PATIENT
  Sex: Female
  Weight: 68.481 kg

DRUGS (5)
  1. PREVACID 24 HR [Suspect]
     Indication: PROPHYLAXIS
     Dosage: 15 MG, QD
     Route: 048
     Dates: start: 20090201, end: 20110329
  2. CELEBREX [Concomitant]
  3. GLUCOSAMINE [Concomitant]
  4. MULTIVITAMIN [Concomitant]
  5. METOPROLOL SUCCINATE [Concomitant]
     Indication: PULSE ABNORMAL

REACTIONS (4)
  - OFF LABEL USE [None]
  - ATRIAL FIBRILLATION [None]
  - FEELING ABNORMAL [None]
  - INCORRECT DRUG ADMINISTRATION DURATION [None]
